FAERS Safety Report 10782361 (Version 1)
Quarter: 2015Q1

REPORT INFORMATION
  Report Type: Spontaneous
  Country: US (occurrence: None)
  Receive Date: 20150209
  Receipt Date: 20150209
  Transmission Date: 20150721
  Serious: No
  Sender: FDA-Public Use
  Company Number: None

PATIENT
  Age: 64 Year
  Sex: Male
  Weight: 90.72 kg

DRUGS (9)
  1. CINNAMON PILLS [Concomitant]
  2. SULFAMETHOXAZOLE-TRIMETHOPRIM (SMZ) [Suspect]
     Active Substance: SULFAMETHOXAZOLE\TRIMETHOPRIM
     Indication: STAPHYLOCOCCAL INFECTION
     Route: 048
     Dates: start: 20110809, end: 20110823
  3. VITAMIN D [Concomitant]
     Active Substance: CHOLECALCIFEROL
  4. APPLE,, PILLS [Concomitant]
  5. SULFAMETHOXAZOLE-TRIMETHOPRIM (SMZ) [Suspect]
     Active Substance: SULFAMETHOXAZOLE\TRIMETHOPRIM
     Indication: RENAL FAILURE
     Route: 048
     Dates: start: 20110809, end: 20110823
  6. VERA JUICE [Concomitant]
  7. FLAX SEED OIL PILLS [Concomitant]
  8. APPLE CIDER VINEGAR PILLS [Concomitant]
  9. L-ARGININE PLUS POWDER [Concomitant]

REACTIONS (5)
  - Pruritus [None]
  - Renal failure [None]
  - Dialysis [None]
  - Scratch [None]
  - Hypersensitivity [None]

NARRATIVE: CASE EVENT DATE: 20110823
